FAERS Safety Report 19138528 (Version 1)
Quarter: 2021Q2

REPORT INFORMATION
  Report Type: Spontaneous
  Country: FR (occurrence: FR)
  Receive Date: 20210415
  Receipt Date: 20210415
  Transmission Date: 20210717
  Serious: Yes (Hospitalization)
  Sender: FDA-Public Use
  Company Number: FR-TEVA-2021-FR-1900490

PATIENT
  Age: 67 Year
  Sex: Male
  Weight: 64 kg

DRUGS (9)
  1. ROACTEMRA [Suspect]
     Active Substance: TOCILIZUMAB
     Indication: GIANT CELL ARTERITIS
     Dosage: 162 MG
     Route: 058
     Dates: start: 20200622, end: 20210125
  2. BISOPROLOL (FUMARATE ACIDE DE) [Concomitant]
     Active Substance: BISOPROLOL FUMARATE
  3. EPLERENONE. [Concomitant]
     Active Substance: EPLERENONE
  4. ATORVASTATINE [Suspect]
     Active Substance: ATORVASTATIN
     Indication: DYSLIPIDAEMIA
     Dosage: 80 MG
     Route: 048
     Dates: start: 20210116, end: 20210216
  5. KARDEGIC [Concomitant]
     Active Substance: ASPIRIN DL-LYSINE
     Dosage: POWDER FOR ORAL SOLUTION IN SACHET?DOSE
  6. PANTOPRAZOLE [Concomitant]
     Active Substance: PANTOPRAZOLE
  7. CORTANCYL [Concomitant]
     Active Substance: PREDNISONE
  8. RAMIPRIL. [Concomitant]
     Active Substance: RAMIPRIL
     Dosage: THE MORNING
  9. ZOPICLONE [Concomitant]
     Active Substance: ZOPICLONE
     Dosage: THE EVENING

REACTIONS (1)
  - Neutropenia [Recovered/Resolved]

NARRATIVE: CASE EVENT DATE: 20210205
